FAERS Safety Report 9617799 (Version 1)
Quarter: 2013Q4

REPORT INFORMATION
  Report Type: Spontaneous
  Country: CA (occurrence: None)
  Receive Date: 20131009
  Receipt Date: 20131009
  Transmission Date: 20140711
  Serious: Yes (Other)
  Sender: FDA-Public Use
  Company Number: FK201304454

PATIENT
  Age: 65 Year
  Sex: Female

DRUGS (8)
  1. FLUOROURACIL [Suspect]
     Indication: OESTROGEN RECEPTOR POSITIVE BREAST CANCER
  2. FLUOROURACIL [Suspect]
     Indication: BREAST CANCER STAGE I
  3. METHOTREXATE (METHOTREXATE) (METHOTREXATE) [Suspect]
     Indication: OESTROGEN RECEPTOR POSITIVE BREAST CANCER
  4. METHOTREXATE (METHOTREXATE) (METHOTREXATE) [Suspect]
     Indication: BREAST CANCER STAGE I
  5. CYCLOPHOSPHAMIDE (CYCLOPHOSPHAMIDE) (CYCLOPHOSPHAMIDE) [Suspect]
     Indication: OESTROGEN RECEPTOR POSITIVE BREAST CANCER
  6. CYCLOPHOSPHAMIDE (CYCLOPHOSPHAMIDE) (CYCLOPHOSPHAMIDE) [Suspect]
     Indication: BREAST CANCER STAGE I
  7. EXEMESTANE [Suspect]
     Indication: OESTROGEN RECEPTOR POSITIVE BREAST CANCER
  8. EXEMESTANE [Suspect]
     Indication: BREAST CANCER STAGE I

REACTIONS (1)
  - Cognitive disorder [None]
